FAERS Safety Report 7216878-2 (Version None)
Quarter: 2011Q1

REPORT INFORMATION
  Report Type: 
  Country: None (occurrence: None)
  Receive Date: 20110110
  Receipt Date: 20101228
  Transmission Date: 20110831
  Serious: Yes (Other)
  Sender: FDA-Public Use
  Company Number: PL-JNJFOC-20110100382

PATIENT
  Age: 8 Year
  Sex: Female

DRUGS (1)
  1. ITRACONAZOLE [Suspect]
     Indication: DERMATOPHYTOSIS
     Route: 065

REACTIONS (3)
  - ERYTHEMA NODOSUM [None]
  - KERION [None]
  - SKIN INFECTION [None]
